FAERS Safety Report 15582993 (Version 1)
Quarter: 2018Q4

REPORT INFORMATION
  Report Type: Report from Study
  Country: ES (occurrence: ES)
  Receive Date: 20181103
  Receipt Date: 20181103
  Transmission Date: 20190205
  Serious: Yes (Other)
  Sender: FDA-Public Use
  Company Number: ES-ACCORD-091016

PATIENT
  Age: 30 Year
  Sex: Male

DRUGS (3)
  1. CLORAZEPIC ACID [Concomitant]
     Active Substance: CLORAZEPIC ACID
     Dosage: 1-0-0
     Route: 048
     Dates: start: 20170228
  2. ARIPIPRAZOLE. [Suspect]
     Active Substance: ARIPIPRAZOLE
     Indication: PRODUCT USED FOR UNKNOWN INDICATION
     Dosage: 1-0-0
     Route: 048
     Dates: start: 20170228, end: 20170403
  3. PAROXETINE. [Concomitant]
     Active Substance: PAROXETINE
     Dosage: 1-0-0
     Route: 048
     Dates: start: 20170228

REACTIONS (1)
  - Hepatitis alcoholic [Recovered/Resolved]

NARRATIVE: CASE EVENT DATE: 20170403
